FAERS Safety Report 7388892-8 (Version None)
Quarter: 2011Q2

REPORT INFORMATION
  Report Type: 
  Country: None (occurrence: None)
  Receive Date: 20110401
  Receipt Date: 20110323
  Transmission Date: 20111010
  Serious: Yes (Other)
  Sender: FDA-Public Use
  Company Number: US-JNJFOC-20110310122

PATIENT
  Sex: Female

DRUGS (3)
  1. ACETAMINOPHEN [Suspect]
     Indication: PRODUCT USED FOR UNKNOWN INDICATION
     Route: 048
  2. CELEBREX [Suspect]
     Indication: PRODUCT USED FOR UNKNOWN INDICATION
     Dosage: 200 MG, 3-4 TIMES DAILY FOR 15 MONTHS
  3. ACETAMINOPHEN [Suspect]
     Route: 048

REACTIONS (3)
  - GASTRIC DISORDER [None]
  - LARGE INTESTINAL ULCER [None]
  - GASTROINTESTINAL MUCOSAL DISORDER [None]
